FAERS Safety Report 9816377 (Version 1)
Quarter: 2014Q1

REPORT INFORMATION
  Report Type: Spontaneous
  Country: US (occurrence: US)
  Receive Date: 20140114
  Receipt Date: 20140114
  Transmission Date: 20141002
  Serious: Yes (Death)
  Sender: FDA-Public Use
  Company Number: US-PFIZER INC-2014007196

PATIENT
  Age: 46 Year
  Sex: Male

DRUGS (11)
  1. AMLODIPINE BESILATE [Suspect]
     Dosage: UNK
  2. ALPRAZOLAM [Suspect]
     Dosage: UNK
  3. GLIBENCLAMIDE [Suspect]
     Dosage: UNK
  4. FAMOTIDINE [Suspect]
     Dosage: UNK
  5. GEMFIBROZIL [Suspect]
     Dosage: UNK
  6. METOPROLOL [Suspect]
     Dosage: UNK
  7. METFORMIN [Suspect]
     Dosage: UNK
  8. CARISOPRODOL [Suspect]
     Dosage: UNK
  9. HYDROCODONE [Suspect]
     Dosage: UNK
  10. PRAVASTATIN [Suspect]
     Dosage: UNK
  11. ALLOPURINOL [Suspect]
     Dosage: UNK

REACTIONS (1)
  - Completed suicide [Fatal]
